FAERS Safety Report 20596640 (Version 1)
Quarter: 2022Q1

REPORT INFORMATION
  Report Type: Spontaneous
  Country: US (occurrence: US)
  Receive Date: 20220315
  Receipt Date: 20220315
  Transmission Date: 20220423
  Serious: No
  Sender: FDA-Public Use
  Company Number: US-AIMMUNE THERAPEUTICS, INC.-2022AIMT00171

PATIENT

DRUGS (2)
  1. PALFORZIA [Suspect]
     Active Substance: PEANUT
     Indication: Food allergy
     Dosage: 40 MG, 1X/DAY
     Route: 048
     Dates: start: 20220215, end: 20220222
  2. PALFORZIA [Suspect]
     Active Substance: PEANUT
     Dosage: 12 MG, 1X/DAY, DOSE DECREASED
     Route: 048
     Dates: start: 202203

REACTIONS (8)
  - Gastrooesophageal reflux disease [Unknown]
  - Viral infection [Unknown]
  - Oropharyngeal pain [Unknown]
  - Nasal congestion [Unknown]
  - Swelling [Unknown]
  - Oral pruritus [Unknown]
  - Paraesthesia oral [Unknown]
  - Pruritus [Unknown]

NARRATIVE: CASE EVENT DATE: 20220201
